FAERS Safety Report 6863683-2 (Version None)
Quarter: 2010Q3

REPORT INFORMATION
  Report Type: 
  Country: None (occurrence: None)
  Receive Date: 20100721
  Receipt Date: 20080309
  Transmission Date: 20110219
  Serious: No
  Sender: FDA-Public Use
  Company Number: US-PFIZER INC-2008022704

PATIENT
  Sex: Female
  Weight: 74.5 kg

DRUGS (10)
  1. CHANTIX [Suspect]
     Indication: SMOKING CESSATION THERAPY
     Dates: start: 20080301
  2. PROPRANOLOL [Concomitant]
     Indication: MUSCLE SPASMS
  3. PALIPERIDONE [Concomitant]
  4. GEODON [Concomitant]
     Indication: ANXIETY
  5. GEODON [Concomitant]
     Indication: PANIC ATTACK
  6. CYMBALTA [Concomitant]
     Indication: DEPRESSION
  7. CYPROHEPTADINE HCL [Concomitant]
     Indication: NIGHTMARE
  8. BENZTROPINE MESYLATE [Concomitant]
  9. OXYBUTYNIN CHLORIDE [Concomitant]
  10. DETROL [Concomitant]
     Indication: BLADDER DISORDER

REACTIONS (1)
  - NAUSEA [None]
